FAERS Safety Report 8724728 (Version 6)
Quarter: 2013Q2

REPORT INFORMATION
  Report Type: Spontaneous
  Country: GB (occurrence: GB)
  Receive Date: 20120815
  Receipt Date: 20130522
  Transmission Date: 20140414
  Serious: Yes (Hospitalization, Other)
  Sender: FDA-Public Use
  Company Number: PHHY2012GB068564

PATIENT
  Age: 63 Year
  Sex: Female

DRUGS (5)
  1. FELODIPINE [Suspect]
     Dosage: UNK UKN, UNK
  2. SIMVASTATIN [Suspect]
     Route: 048
  3. DENZAPINE [Suspect]
     Indication: SCHIZOPHRENIA
     Dosage: UNK UKN, UNK
     Route: 048
     Dates: end: 20120730
  4. DENZAPINE [Suspect]
     Dosage: UNK UKN, UNK
     Route: 048
     Dates: start: 20120731
  5. DIURETICS [Concomitant]

REACTIONS (1)
  - Cerebrovascular accident [Not Recovered/Not Resolved]
